FAERS Safety Report 5813304-2 (Version None)
Quarter: 2008Q3

REPORT INFORMATION
  Report Type: 
  Country: None (occurrence: None)
  Receive Date: 20080717
  Receipt Date: 20080715
  Transmission Date: 20090109
  Serious: Yes (Death, Hospitalization)
  Sender: FDA-Public Use
  Company Number: US-BRISTOL-MYERS SQUIBB COMPANY-14143424

PATIENT
  Age: 85 Year
  Sex: Male
  Weight: 83 kg

DRUGS (20)
  1. CYCLOPHOSPHAMIDE [Suspect]
     Indication: DIFFUSE LARGE B-CELL LYMPHOMA
     Route: 042
     Dates: start: 20080321
  2. DOXORUBICIN HCL [Suspect]
     Indication: DIFFUSE LARGE B-CELL LYMPHOMA
     Route: 042
     Dates: start: 20080321
  3. VINCRISTINE SULFATE [Suspect]
     Indication: DIFFUSE LARGE B-CELL LYMPHOMA
     Route: 042
     Dates: start: 20080321
  4. ENZASTAURIN [Suspect]
     Indication: DIFFUSE LARGE B-CELL LYMPHOMA
     Dosage: 500MG/DAY TAKEN FROM 23MAR08-CONTD
     Route: 048
     Dates: start: 20080322, end: 20080322
  5. RITUXIMAB [Suspect]
     Indication: DIFFUSE LARGE B-CELL LYMPHOMA
     Route: 042
     Dates: start: 20080320
  6. PREDNISONE TAB [Suspect]
     Indication: DIFFUSE LARGE B-CELL LYMPHOMA
     Route: 048
     Dates: start: 20080320
  7. LISINOPRIL [Concomitant]
  8. METOPROLOL TARTRATE [Concomitant]
  9. ZOCOR [Concomitant]
  10. HYDROCHLOROTHIAZIDE [Concomitant]
  11. ALLOPURINOL [Concomitant]
  12. ASPIRIN [Concomitant]
  13. CALCIUM [Concomitant]
  14. MULTI-VITAMIN [Concomitant]
  15. LAC-HYDRIN [Concomitant]
  16. NEULASTA [Concomitant]
     Dates: start: 20080322
  17. CARVEDILOL [Concomitant]
  18. TRIAMCINOLONE [Concomitant]
  19. GLUCOSAMINE [Concomitant]
  20. CEFEPIME [Concomitant]
     Dates: start: 20080331

REACTIONS (3)
  - NEUTROPENIA [None]
  - PNEUMONIA [None]
  - SEPSIS [None]
